FAERS Safety Report 9954291 (Version 1)
Quarter: 2014Q1

REPORT INFORMATION
  Report Type: Spontaneous
  Country: US (occurrence: US)
  Receive Date: 20140304
  Receipt Date: 20140304
  Transmission Date: 20141002
  Serious: No
  Sender: FDA-Public Use
  Company Number: US-ABBVIE-13P-163-1073554-00

PATIENT
  Age: 35 Year
  Sex: Female
  Weight: 57.66 kg

DRUGS (3)
  1. HUMIRA [Suspect]
     Indication: CROHN^S DISEASE
     Dates: start: 201208, end: 201208
  2. HUMIRA [Suspect]
     Indication: COLITIS ULCERATIVE
     Dates: start: 2012, end: 2012
  3. HUMIRA [Suspect]
     Dates: start: 2012

REACTIONS (2)
  - Injection site eczema [Recovered/Resolved]
  - Psoriasis [Not Recovered/Not Resolved]
